FAERS Safety Report 11703390 (Version 1)
Quarter: 2015Q4

REPORT INFORMATION
  Report Type: Spontaneous
  Country: GB (occurrence: GB)
  Receive Date: 20151105
  Receipt Date: 20151105
  Transmission Date: 20160304
  Serious: Yes (Death, Hospitalization, Other)
  Sender: FDA-Public Use
  Company Number: GB-GILEAD-2015-0180873

PATIENT
  Age: 86 Year
  Sex: Female

DRUGS (8)
  1. CHLORPHENAMINE [Concomitant]
     Active Substance: CHLORPHENIRAMINE MALEATE
  2. SOLIFENACIN [Concomitant]
     Active Substance: SOLIFENACIN
  3. ISOSORBIDE. [Concomitant]
     Active Substance: ISOSORBIDE
  4. ZYDELIG [Suspect]
     Active Substance: IDELALISIB
     Indication: CHRONIC LYMPHOCYTIC LEUKAEMIA
     Route: 048
     Dates: start: 20150817
  5. ATORVASTATIN [Concomitant]
     Active Substance: ATORVASTATIN
  6. FLECAINIDE [Concomitant]
     Active Substance: FLECAINIDE
  7. WARFARIN [Concomitant]
     Active Substance: WARFARIN
  8. PARACETAMOL [Concomitant]
     Active Substance: ACETAMINOPHEN

REACTIONS (2)
  - Pneumonitis [Fatal]
  - Lower respiratory tract infection [Not Recovered/Not Resolved]
